FAERS Safety Report 18413495 (Version 1)
Quarter: 2020Q4

REPORT INFORMATION
  Report Type: Spontaneous
  Country: FR (occurrence: FR)
  Receive Date: 20201021
  Receipt Date: 20201021
  Transmission Date: 20210114
  Serious: Yes (Other)
  Sender: FDA-Public Use
  Company Number: FR-ROCHE-2698930

PATIENT

DRUGS (1)
  1. XELODA [Suspect]
     Active Substance: CAPECITABINE
     Indication: NEOPLASM MALIGNANT
     Route: 048

REACTIONS (4)
  - Toxicity to various agents [Unknown]
  - Burning sensation [Not Recovered/Not Resolved]
  - Gait inability [Not Recovered/Not Resolved]
  - Burning sensation mucosal [Not Recovered/Not Resolved]
